FAERS Safety Report 7056896-0 (Version None)
Quarter: 2010Q4

REPORT INFORMATION
  Report Type: 
  Country: None (occurrence: None)
  Receive Date: 20101022
  Receipt Date: 20101012
  Transmission Date: 20110411
  Serious: Yes (Death)
  Sender: FDA-Public Use
  Company Number: US-JNJFOC-20101003376

PATIENT
  Sex: Male
  Weight: 88.45 kg

DRUGS (6)
  1. REMICADE [Suspect]
     Indication: CROHN'S DISEASE
     Route: 042
  2. ACETAMINOPHEN [Concomitant]
  3. BENTYL [Concomitant]
  4. MULTIPLE VITAMINS WITH IRON [Concomitant]
  5. MYCOLOG [Concomitant]
  6. SINGULAIR [Concomitant]

REACTIONS (1)
  - COMPLETED SUICIDE [None]
